FAERS Safety Report 20643612 (Version 1)
Quarter: 2022Q1

REPORT INFORMATION
  Report Type: Other
  Country: US (occurrence: None)
  Receive Date: 20220328
  Receipt Date: 20220328
  Transmission Date: 20220423
  Serious: Yes (Hospitalization, Other)
  Sender: FDA-Public Use
  Company Number: US-Navinta LLC-000241

PATIENT
  Age: 65 Year
  Sex: Female

DRUGS (2)
  1. HYDRALAZINE [Suspect]
     Active Substance: HYDRALAZINE HYDROCHLORIDE
     Indication: Hypertension
     Dosage: 50 MG TWICE PER DAY
  2. HYDRALAZINE [Suspect]
     Active Substance: HYDRALAZINE HYDROCHLORIDE
     Indication: Hypertension

REACTIONS (6)
  - Acute hepatic failure [Recovered/Resolved]
  - Condition aggravated [Recovered/Resolved]
  - Hypoglycaemia [Recovered/Resolved]
  - Metabolic acidosis [Recovered/Resolved]
  - Pericardial effusion [Recovered/Resolved]
  - Encephalopathy [Recovered/Resolved]
